FAERS Safety Report 9496542 (Version 4)
Quarter: 2014Q2

REPORT INFORMATION
  Report Type: Report from Study
  Country: CA (occurrence: CA)
  Receive Date: 20130904
  Receipt Date: 20140513
  Transmission Date: 20141212
  Serious: Yes (Hospitalization, Other)
  Sender: FDA-Public Use
  Company Number: CA-JNJFOC-20130509264

PATIENT
  Age: 64 Year
  Sex: Male
  Weight: 97 kg

DRUGS (4)
  1. REMICADE [Suspect]
     Indication: RHEUMATOID ARTHRITIS
     Dosage: X 52 WEEKS
     Route: 042
     Dates: start: 20080418
  2. REMICADE [Suspect]
     Indication: RHEUMATOID ARTHRITIS
     Dosage: X 52 WEEKS
     Route: 042
     Dates: start: 20040105
  3. REMICADE [Suspect]
     Indication: RHEUMATOID ARTHRITIS
     Route: 042
     Dates: start: 200806, end: 201308
  4. METHOTREXATE [Concomitant]
     Route: 048

REACTIONS (3)
  - Knee arthroplasty [Unknown]
  - Immune system disorder [Unknown]
  - Staphylococcal infection [Unknown]
